FAERS Safety Report 6235554-6 (Version None)
Quarter: 2009Q2

REPORT INFORMATION
  Report Type: 
  Country: None (occurrence: None)
  Receive Date: 20090618
  Receipt Date: 20090122
  Transmission Date: 20091009
  Serious: No
  Sender: FDA-Public Use
  Company Number: US-ASTRAZENECA-2009UW02180

PATIENT
  Sex: Female

DRUGS (1)
  1. RHINOCORT [Suspect]
     Dosage: UNKNOWN
     Route: 045

REACTIONS (2)
  - INCORRECT DOSE ADMINISTERED [None]
  - PYREXIA [None]
